FAERS Safety Report 4998542-3 (Version None)
Quarter: 2006Q2

REPORT INFORMATION
  Report Type: 
  Country: None (occurrence: None)
  Receive Date: 20060508
  Receipt Date: 20060424
  Transmission Date: 20061013
  Serious: Yes (Hospitalization, Disabling)
  Sender: FDA-Public Use
  Company Number: 2006018174

PATIENT
  Sex: Female

DRUGS (1)
  1. DIFLUCAN [Suspect]
     Indication: ORAL FUNGAL INFECTION
     Dosage: (1 IN 1 D), ORAL
     Route: 048
     Dates: start: 20050101, end: 20060122

REACTIONS (6)
  - ALLERGY TEST POSITIVE [None]
  - COUGH [None]
  - DRUG EFFECT DECREASED [None]
  - ORAL FUNGAL INFECTION [None]
  - THROAT IRRITATION [None]
  - URINARY TRACT INFECTION [None]
